FAERS Safety Report 7238666-3 (Version None)
Quarter: 2011Q1

REPORT INFORMATION
  Report Type: 
  Country: None (occurrence: None)
  Receive Date: 20110121
  Receipt Date: 20110117
  Transmission Date: 20110831
  Serious: Yes (Death, Congenital Anomaly)
  Sender: FDA-Public Use
  Company Number: PHHY2011ZA03939

PATIENT
  Sex: Female

DRUGS (1)
  1. WARFARIN [Suspect]
     Dosage: UNK
     Route: 064

REACTIONS (8)
  - INTRA-UTERINE DEATH [None]
  - URINARY TRACT MALFORMATION [None]
  - SUBARACHNOID HAEMORRHAGE NEONATAL [None]
  - BREECH PRESENTATION [None]
  - NECROSIS [None]
  - MATERNAL DRUGS AFFECTING FOETUS [None]
  - FOETAL WARFARIN SYNDROME [None]
  - NOSE DEFORMITY [None]
